FAERS Safety Report 23476059 (Version 1)
Quarter: 2024Q1

REPORT INFORMATION
  Report Type: Spontaneous
  Country: ES (occurrence: ES)
  Receive Date: 20240204
  Receipt Date: 20240204
  Transmission Date: 20240409
  Serious: No
  Sender: FDA-Public Use
  Company Number: ES-EXELIXIS-CABO-23062012

PATIENT
  Age: 47 Year
  Sex: Male

DRUGS (4)
  1. CABOMETYX [Suspect]
     Active Substance: CABOZANTINIB S-MALATE
     Indication: Renal cell carcinoma stage IV
     Dosage: 40 MG, QD
     Dates: start: 20191214
  2. CABOMETYX [Suspect]
     Active Substance: CABOZANTINIB S-MALATE
     Dosage: 40 MG, QD
     Dates: start: 202003, end: 202008
  3. CABOMETYX [Suspect]
     Active Substance: CABOZANTINIB S-MALATE
     Dosage: 40 MG, QD
  4. CABOMETYX [Suspect]
     Active Substance: CABOZANTINIB S-MALATE
     Dosage: 20 MG, QD
     Dates: start: 202011

REACTIONS (7)
  - COVID-19 [Unknown]
  - Hypertransaminasaemia [Unknown]
  - Decreased appetite [Recovering/Resolving]
  - Asthenia [Unknown]
  - Weight decreased [Recovering/Resolving]
  - Nausea [Recovering/Resolving]
  - Malignant neoplasm progression [Unknown]

NARRATIVE: CASE EVENT DATE: 20200227
